FAERS Safety Report 8167349-0 (Version None)
Quarter: 2012Q1

REPORT INFORMATION
  Report Type: 
  Country: None (occurrence: None)
  Receive Date: 20120227
  Receipt Date: 20120221
  Transmission Date: 20120608
  Serious: Yes (Hospitalization, Other)
  Sender: FDA-Public Use
  Company Number: US-JNJFOC-20120101533

PATIENT
  Sex: Female
  Weight: 57.15 kg

DRUGS (11)
  1. FENTANYL-100 [Suspect]
     Route: 062
     Dates: start: 20110101
  2. FENTANYL-100 [Suspect]
     Indication: FIBROMYALGIA
     Route: 062
     Dates: start: 20080101
  3. FENTANYL-100 [Suspect]
     Indication: RHEUMATOID ARTHRITIS
     Route: 062
     Dates: start: 20080101
  4. FENTANYL-100 [Suspect]
     Route: 062
     Dates: start: 20110101, end: 20110101
  5. OXYCODONE HCL AND ACETAMINOPHEN [Concomitant]
     Indication: BREAKTHROUGH PAIN
     Route: 048
  6. FENTANYL-100 [Suspect]
     Route: 062
  7. FENTANYL-100 [Suspect]
     Route: 062
     Dates: start: 20110101, end: 20110101
  8. FENTANYL-100 [Suspect]
     Route: 062
     Dates: start: 20110101
  9. FENTANYL-100 [Suspect]
     Route: 062
     Dates: end: 20110101
  10. FENTANYL-100 [Suspect]
     Route: 062
  11. FENTANYL-100 [Suspect]
     Route: 062
     Dates: end: 20110101

REACTIONS (8)
  - ROAD TRAFFIC ACCIDENT [None]
  - FALL [None]
  - MEMORY IMPAIRMENT [None]
  - WRONG TECHNIQUE IN DRUG USAGE PROCESS [None]
  - PRODUCT QUALITY ISSUE [None]
  - LIGAMENT RUPTURE [None]
  - PAIN [None]
  - SOMNOLENCE [None]
